FAERS Safety Report 11078436 (Version 1)
Quarter: 2015Q2

REPORT INFORMATION
  Report Type: Spontaneous
  Country: CA (occurrence: None)
  Receive Date: 20150428
  Receipt Date: 20150428
  Transmission Date: 20150821
  Serious: Yes (Disabling, Other)
  Sender: FDA-Public Use
  Company Number: FK201501944

PATIENT
  Age: 18 Year
  Sex: Male
  Weight: 55 kg

DRUGS (74)
  1. AMITRIPTYLINE (AMITRIPTYLINE) [Concomitant]
     Active Substance: AMITRIPTYLINE
  2. CEFTAZIDIME ( CEFTAZIDIME ) [Concomitant]
  3. DOCUSATE ( DOCUSATE) [Concomitant]
  4. HYDROMORPHONE ( HYDROMORPHONE ) [Concomitant]
  5. MAGNESIUM(MAGNESIUM) [Concomitant]
  6. MESNA (MESNA) [Concomitant]
     Active Substance: MESNA
  7. PENCILLIN (BENZYLPENICILLIN) [Concomitant]
  8. PIPERACILLIN AND TAZOBACTAM [Concomitant]
     Active Substance: PIPERACILLIN SODIUM\TAZOBACTAM SODIUM
  9. QUETIAPINE [Concomitant]
     Active Substance: QUETIAPINE
  10. RANITIDINE [Concomitant]
     Active Substance: RANITIDINE\RANITIDINE HYDROCHLORIDE
  11. ZOPICLONE [Concomitant]
     Active Substance: ZOPICLONE
  12. MITOXANTRONE [Suspect]
     Active Substance: MITOXANTRONE HYDROCHLORIDE
     Indication: ACUTE MYELOID LEUKAEMIA
     Dosage: 20 MG. CYCLICAL, INTRAVENOUS (NOT OTHERWISE SPECIFIED)
     Route: 042
  13. ACYCLOVIR (ACICLOVIR) [Concomitant]
  14. ALLOPURINOL (ALLOPURINOL) [Concomitant]
     Active Substance: ALLOPURINOL
  15. AMPHOTERICIN B(AMPHOTERICIN B) [Concomitant]
  16. CANCIDAS (CASPOFUNGIN ACETATE) [Concomitant]
  17. CEFAZOLIN (CEFAZOLIN) [Concomitant]
     Active Substance: CEFAZOLIN
  18. CETIRIZINE(CETIRIZINE) [Concomitant]
  19. CIPROFLOXACIN (CIPROFLOXACIN) [Concomitant]
     Active Substance: CIPROFLOXACIN
  20. CYCLOPHOSPHAMIDE ( CYCLOPHOSPHAMIDE ) [Concomitant]
  21. CYCLOSPORINE (CICLOSPORIN) [Concomitant]
     Active Substance: CYCLOSPORINE
  22. FASTURTEC [Concomitant]
     Active Substance: RASBURICASE
  23. INSULIN(INSULIN) [Concomitant]
  24. MORPHINE SULFATE. [Concomitant]
     Active Substance: MORPHINE SULFATE
  25. NIFEDIPINE(NIFEDIPINE) [Concomitant]
  26. SPIRONOLACTONE. [Concomitant]
     Active Substance: SPIRONOLACTONE
  27. TAMIFLU [Concomitant]
     Active Substance: OSELTAMIVIR PHOSPHATE
  28. TOBRAMYCIN. [Concomitant]
     Active Substance: TOBRAMYCIN
  29. URSODEOXYCHOLIC ACID [Concomitant]
     Active Substance: URSODIOL
  30. DESI PRAMINE ( DESIPRAMINE ) [Concomitant]
  31. GABAPENTIN (GABAPENTIN ) [Concomitant]
  32. METHOTREXATE (METHOTREXATE ) [Concomitant]
  33. METHYLPREDNISOLONENOS(METHYLPREDNISOLONE) [Concomitant]
  34. LEVOFLOXACIN. [Concomitant]
     Active Substance: LEVOFLOXACIN
  35. DAUNORUBICIN [Suspect]
     Active Substance: DAUNORUBICIN
     Indication: ACUTE MYELOID LEUKAEMIA
     Route: 042
  36. ALTEPLASE (ALTEPLASE) [Concomitant]
     Active Substance: ALTEPLASE
  37. FLUCONAZOLE. [Concomitant]
     Active Substance: FLUCONAZOLE
  38. MYCOPHENOLATE MOFETIL (MYCOPHENOLATE MOFETIL) [Concomitant]
     Active Substance: MYCOPHENOLATE MOFETIL
  39. TACROLIMUS. [Concomitant]
     Active Substance: TACROLIMUS
  40. TICARCILLIN [Concomitant]
     Active Substance: TICARCILLIN
  41. SULFAMETHOXAZOLE AND TRIMETHOPRIM [Concomitant]
     Active Substance: SULFAMETHOXAZOLE\TRIMETHOPRIM
  42. VANCOMYCIN [Concomitant]
     Active Substance: VANCOMYCIN
  43. DIGOXIN ( DIGOXIN) [Concomitant]
  44. NAPROXEN (NAPROXEN) [Concomitant]
     Active Substance: NAPROXEN
  45. NEUPOGEN(FILGRASTIM) [Concomitant]
  46. OMEPRAZOLE. [Concomitant]
     Active Substance: OMEPRAZOLE
  47. VORICONAZOLE. [Concomitant]
     Active Substance: VORICONAZOLE
  48. PREDNISONE. [Suspect]
     Active Substance: PREDNISONE
  49. CYTARABINE. [Concomitant]
     Active Substance: CYTARABINE
  50. ACETAMINOPHEN (PARACETAMOL) [Concomitant]
     Active Substance: ACETAMINOPHEN
  51. AMLODIPINE [Concomitant]
     Active Substance: AMLODIPINE BESYLATE
  52. CEPHALEXIN ( CE FALEXIN ) [Concomitant]
  53. CODEINE(CODEINE) [Concomitant]
  54. FAMCICLOVIR ( FAMCICLOVIR) [Concomitant]
  55. LANSOPRAZOLE ( LANSOPRAZOLE ) [Concomitant]
  56. MAGNESIUM SULFATE (MAGNESIUM SULFATE) [Concomitant]
  57. MELATONIN (MELATONIN) [Concomitant]
     Active Substance: MELATONIN
  58. MEROPENEM (MEROPENEM) [Concomitant]
     Active Substance: MEROPENEM
  59. PEGABALIN [Concomitant]
  60. ETOPOSIDE ( ETOPOSIDE) [Concomitant]
  61. FLUDARABINE ( FLUDARABINE ) [Concomitant]
  62. HYDROCORTISONE(HYDROCORTISONE) [Concomitant]
  63. MIRTAZAPINE (MIRTAZAPINE) [Concomitant]
     Active Substance: MIRTAZAPINE
  64. NYSTATIN ( NYSTATIN ) [Concomitant]
  65. PENTAMIDINE ISETHIONATE [Concomitant]
     Active Substance: PENTAMIDINE ISETHIONATE
  66. ZINECARD (DEXRAZOXANE) [Concomitant]
  67. CHOLESCALCIFEROL (COLECALCIFEROL) [Concomitant]
  68. CLARITHROMYCIN (CLARITHROMYCIN ) [Concomitant]
  69. HYDROXYZINE(HYDROXYZINE) [Concomitant]
  70. LEUCOVORIN (CALCIUM FOLINATE) [Concomitant]
     Active Substance: LEUCOVORIN
  71. LOSARTAN ( LOSARTAN ) [Concomitant]
  72. ONDANSETRON [Concomitant]
     Active Substance: ONDANSETRON
  73. POTASSIUM CHLORIDE. [Concomitant]
     Active Substance: POTASSIUM CHLORIDE
  74. RELENZA (ZANAMIVIR) [Concomitant]

REACTIONS (5)
  - Diastolic dysfunction [None]
  - Dyspnoea exertional [None]
  - Congestive cardiomyopathy [None]
  - Tachycardia [None]
  - Systolic dysfunction [None]
